FAERS Safety Report 15956563 (Version 4)
Quarter: 2019Q2

REPORT INFORMATION
  Report Type: Report from Study
  Country: US (occurrence: US)
  Receive Date: 20190213
  Receipt Date: 20190605
  Transmission Date: 20190711
  Serious: Yes (Other)
  Sender: FDA-Public Use
  Company Number: US-JNJFOC-20190212220

PATIENT
  Sex: Male

DRUGS (9)
  1. IMBRUVICA [Suspect]
     Active Substance: IBRUTINIB
     Indication: CHRONIC LYMPHOCYTIC LEUKAEMIA
     Route: 048
     Dates: start: 20181204
  2. GABAPENTIN. [Concomitant]
     Active Substance: GABAPENTIN
  3. PROMACTA [Concomitant]
     Active Substance: ELTROMBOPAG OLAMINE
  4. MULTIVITAMINS [Concomitant]
     Active Substance: VITAMINS
  5. IMBRUVICA [Suspect]
     Active Substance: IBRUTINIB
     Indication: CHRONIC LYMPHOCYTIC LEUKAEMIA
     Route: 048
     Dates: start: 20181201
  6. IBUPROFEN. [Concomitant]
     Active Substance: IBUPROFEN
  7. LOTREL [Concomitant]
     Active Substance: AMLODIPINE BESYLATE\BENAZEPRIL HYDROCHLORIDE
  8. MAGNESIUM [Concomitant]
     Active Substance: MAGNESIUM
  9. PEPCID [Concomitant]
     Active Substance: FAMOTIDINE

REACTIONS (7)
  - Joint effusion [Unknown]
  - Increased tendency to bruise [Unknown]
  - Road traffic accident [Unknown]
  - Meniscus injury [Unknown]
  - Back disorder [Unknown]
  - Vitamin D decreased [Unknown]
  - Skin atrophy [Unknown]
